FAERS Safety Report 15788792 (Version 1)
Quarter: 2019Q1

REPORT INFORMATION
  Report Type: Spontaneous
  Country: US (occurrence: US)
  Receive Date: 20190104
  Receipt Date: 20190104
  Transmission Date: 20190417
  Serious: Yes (Hospitalization, Other)
  Sender: FDA-Public Use
  Company Number: US-ABBVIE-18S-163-2609023-00

PATIENT
  Age: 57 Year
  Sex: Female

DRUGS (3)
  1. DEPAKOTE [Suspect]
     Active Substance: DIVALPROEX SODIUM
     Indication: PRODUCT USED FOR UNKNOWN INDICATION
     Route: 065
     Dates: end: 201812
  2. BREO ELLIPTA [Suspect]
     Active Substance: FLUTICASONE FUROATE\VILANTEROL TRIFENATATE
     Indication: CHRONIC OBSTRUCTIVE PULMONARY DISEASE
     Dosage: 200/25 UG  1 PUFF, QD
     Route: 055
     Dates: start: 2016, end: 201811
  3. BREO ELLIPTA [Suspect]
     Active Substance: FLUTICASONE FUROATE\VILANTEROL TRIFENATATE
     Indication: ASTHMA
     Dosage: 200/25 UG  1 PUFF, QD
     Route: 055
     Dates: start: 201812

REACTIONS (7)
  - Gastrooesophageal reflux disease [Unknown]
  - Asthma [Recovered/Resolved]
  - Asthma [Unknown]
  - Weight increased [Unknown]
  - Hiatus hernia [Unknown]
  - Depression [Unknown]
  - Infection [Unknown]

NARRATIVE: CASE EVENT DATE: 2018
